FAERS Safety Report 18347093 (Version 5)
Quarter: 2020Q4

REPORT INFORMATION
  Report Type: Spontaneous
  Country: JP (occurrence: JP)
  Receive Date: 20201005
  Receipt Date: 20201112
  Transmission Date: 20210114
  Serious: Yes (Death, Hospitalization, Other)
  Sender: FDA-Public Use
  Company Number: JP-SAKK-2020SA271454AA

PATIENT

DRUGS (17)
  1. TARGOCID [Suspect]
     Active Substance: TEICOPLANIN
     Indication: INFECTION
     Dosage: 14 DOSES
     Route: 065
     Dates: start: 201909
  2. FLUCONAZOLE. [Concomitant]
     Active Substance: FLUCONAZOLE
     Indication: PRODUCT USED FOR UNKNOWN INDICATION
     Route: 048
  3. VFEND [Concomitant]
     Active Substance: VORICONAZOLE
     Indication: INFECTION
     Dosage: DAILY DOSE: 600 MG (4 TABLETS)
     Route: 048
  4. VANCOMYCIN [VANCOMYCIN HYDROCHLORIDE] [Concomitant]
     Active Substance: VANCOMYCIN HYDROCHLORIDE
     Indication: INFECTION
     Dosage: 2 DOSES
     Route: 065
     Dates: start: 201907
  5. FUNGUARD [Concomitant]
     Active Substance: MICAFUNGIN SODIUM
     Indication: PRODUCT USED FOR UNKNOWN INDICATION
     Route: 065
  6. ALKERAN [Concomitant]
     Active Substance: MELPHALAN
     Indication: PRODUCT USED FOR UNKNOWN INDICATION
     Route: 065
  7. FINIBAX [Concomitant]
     Active Substance: DORIPENEM MONOHYDRATE
     Indication: INFECTION
     Route: 065
  8. MEROPEN [MEROPENEM TRIHYDRATE] [Concomitant]
     Active Substance: MEROPENEM
     Indication: INFECTION
     Dosage: 2 DOSES
     Route: 065
     Dates: start: 201907
  9. KENKETU GLOVENIN-I [Concomitant]
     Active Substance: HUMAN IMMUNOGLOBULIN G
     Indication: INFECTION
     Dosage: 3 DOSES
     Route: 065
     Dates: start: 201909
  10. CYLOCIDE [Concomitant]
     Active Substance: CYTARABINE
     Indication: PRODUCT USED FOR UNKNOWN INDICATION
     Dosage: DOUBLE DOSE FOR 12 DAYS
     Route: 065
  11. THYMOGLOBULINE [Suspect]
     Active Substance: LAPINE T-LYMPHOCYTE IMMUNE GLOBULIN
     Indication: PRODUCT USED FOR UNKNOWN INDICATION
     Route: 041
  12. BUSULFEX [Concomitant]
     Active Substance: BUSULFAN
     Indication: PRODUCT USED FOR UNKNOWN INDICATION
     Dosage: 4 BOTTLES, 240 MG
     Route: 065
  13. HABEKACIN [ARBEKACIN SULFATE] [Concomitant]
     Indication: STAPHYLOCOCCAL INFECTION
     Route: 065
  14. FLUDARA [Suspect]
     Active Substance: FLUDARABINE PHOSPHATE
     Indication: ACUTE LYMPHOCYTIC LEUKAEMIA REFRACTORY
     Dosage: 6 DOSES FOR 1 CYCLE
     Route: 041
     Dates: start: 201908
  15. ONDANSETRON [Concomitant]
     Active Substance: ONDANSETRON
     Indication: PRODUCT USED FOR UNKNOWN INDICATION
     Route: 065
  16. VENILON [Concomitant]
     Active Substance: HUMAN IMMUNOGLOBULIN G
     Indication: INFECTION
     Route: 065
  17. BLINCYTO [Concomitant]
     Active Substance: BLINATUMOMAB
     Indication: PRODUCT USED FOR UNKNOWN INDICATION
     Dosage: UNK
     Route: 065

REACTIONS (21)
  - Feeding disorder [Unknown]
  - Bone pain [Unknown]
  - Red blood cell count decreased [Unknown]
  - Off label use [Unknown]
  - Pneumonia [Unknown]
  - Lymphocyte count decreased [Unknown]
  - Influenza [Unknown]
  - Mucormycosis [Fatal]
  - Disseminated intravascular coagulation [Unknown]
  - Stomatitis haemorrhagic [Unknown]
  - Dysphagia [Unknown]
  - Oesophagitis [Unknown]
  - Cytomegalovirus infection [Fatal]
  - Pneumocystis jirovecii pneumonia [Fatal]
  - Chest pain [Unknown]
  - Contraindicated product administered [Unknown]
  - Liver disorder [Unknown]
  - Gait disturbance [Unknown]
  - Platelet count decreased [Unknown]
  - Haematemesis [Unknown]
  - Infection [Unknown]

NARRATIVE: CASE EVENT DATE: 2019
